FAERS Safety Report 18579674 (Version 1)
Quarter: 2020Q4

REPORT INFORMATION
  Report Type: Spontaneous
  Country: DE (occurrence: DE)
  Receive Date: 20201204
  Receipt Date: 20201204
  Transmission Date: 20210114
  Serious: Yes (Other)
  Sender: FDA-Public Use
  Company Number: DE-AMERICAN REGENT INC-2020002594

PATIENT
  Age: 28 Year
  Sex: Male

DRUGS (1)
  1. FERINJECT [Suspect]
     Active Substance: FERRIC CARBOXYMALTOSE
     Indication: PRODUCT USED FOR UNKNOWN INDICATION
     Dosage: 1000 MILLIGRAM
     Route: 042
     Dates: start: 201912

REACTIONS (3)
  - Tremor [Unknown]
  - Respiratory distress [Unknown]
  - Paraesthesia [Unknown]

NARRATIVE: CASE EVENT DATE: 201912
